FAERS Safety Report 4602440-4 (Version None)
Quarter: 2005Q1

REPORT INFORMATION
  Report Type: 
  Country: None (occurrence: None)
  Receive Date: 20050307
  Receipt Date: 20050222
  Transmission Date: 20050727
  Serious: Yes (Hospitalization)
  Sender: FDA-Public Use
  Company Number: HQWYE505123FEB05

PATIENT
  Age: 76 Year
  Sex: Male
  Weight: 73.6 kg

DRUGS (26)
  1. RAPAMUNE [Suspect]
     Indication: PROPHYLAXIS AGAINST TRANSPLANT REJECTION
     Dosage: 3 MG 1X PER DAY, ORAL
     Route: 048
     Dates: start: 20050131
  2. RAPAMUNE [Suspect]
  3. PREDNISONE [Concomitant]
  4. ATENOLOL [Concomitant]
  5. MYCELEX [Concomitant]
  6. DARVOCET N (DEXTROPHOPOXYPHENE/PARACETAMOL) [Concomitant]
  7. FLONASE [Concomitant]
  8. THERAGRAN-M (MINERALS NOS/VITAMINS NOS) [Concomitant]
  9. PRAVACHOL [Concomitant]
  10. COUMADIN [Concomitant]
  11. CEFEPINE (CEFEPINE) [Concomitant]
  12. PROTONIX [Concomitant]
  13. FLOMAX [Concomitant]
  14. BACTRIM (SULFAMETHOXAZOLE/TRIMETHIPRIM) [Concomitant]
  15. VALCYTE [Concomitant]
  16. NEURONTIN [Concomitant]
  17. ALBUTEROL [Concomitant]
  18. CIPRO (CIPROFLOXACIN HYDROCHLOROIDE) [Concomitant]
  19. SODIUM BICARBONATE IN PLASTIC CONTAINER [Concomitant]
  20. LANTUS [Concomitant]
  21. NOVOLOG [Concomitant]
  22. AMPHOJEL (ALUMINIUM HYDROXIDE) [Concomitant]
  23. NAFTIN (NAFTIFINE HYDROCHLORIDE) [Concomitant]
  24. MIRALAX [Concomitant]
  25. PROGRAF [Suspect]
     Dosage: SE IMAGE
     Route: 048
     Dates: end: 20050201
  26. PROGRAF [Suspect]
     Dosage: SE IMAGE
     Route: 048
     Dates: start: 20050201

REACTIONS (7)
  - ASTHENIA [None]
  - ATRIAL FIBRILLATION [None]
  - DIZZINESS [None]
  - DYSARTHRIA [None]
  - METABOLIC ENCEPHALOPATHY [None]
  - PULMONARY EMBOLISM [None]
  - TREMOR [None]
